FAERS Safety Report 17791844 (Version 3)
Quarter: 2020Q2

REPORT INFORMATION
  Report Type: Spontaneous
  Country: US (occurrence: US)
  Receive Date: 20200515
  Receipt Date: 20200519
  Transmission Date: 20200714
  Serious: No
  Sender: FDA-Public Use
  Company Number: US-PFIZER INC-2017327192

PATIENT
  Age: 57 Year
  Sex: Male
  Weight: 84 kg

DRUGS (11)
  1. LYRICA [Suspect]
     Active Substance: PREGABALIN
     Indication: NERVE INJURY
     Dosage: 150 MG, 3X/DAY
     Route: 048
  2. CITALOPRAM HYDROBROMIDE. [Concomitant]
     Active Substance: CITALOPRAM HYDROBROMIDE
     Indication: HEADACHE
     Dosage: 20 MG, DAILY
     Dates: start: 20170515
  3. LYRICA [Suspect]
     Active Substance: PREGABALIN
     Indication: PAIN
     Dosage: 150 MG, 2X/DAY (1 CAPSULE TWO TIMES DAILY)
     Route: 048
     Dates: start: 20170705
  4. KEPPRA [Concomitant]
     Active Substance: LEVETIRACETAM
     Indication: SEIZURE
     Dosage: 500 MG, 2X/DAY
     Dates: start: 20170411
  5. PERCOCET [Concomitant]
     Active Substance: ACETAMINOPHEN\OXYCODONE HYDROCHLORIDE
     Dosage: 1 DF, AS NEEDED ((10-325MG TABLET, 1 ORAL THREE TIMES DAILY, AS NEEDED) )
     Route: 048
  6. LISINOPRIL. [Concomitant]
     Active Substance: LISINOPRIL
     Dosage: 40 MG, DAILY
     Route: 048
  7. LYRICA [Suspect]
     Active Substance: PREGABALIN
     Indication: NEURITIS
     Dosage: 150 MG, 3X/DAY (1 CAPSULE (150 MG TOTAL) BY MOUTH 3 (THREE) TIMES DAILY)
     Route: 048
     Dates: start: 20200319, end: 2020
  8. TRAZODONE HYDROCHLORIDE. [Concomitant]
     Active Substance: TRAZODONE HYDROCHLORIDE
     Dosage: 25 MG, 1X/DAY ((50MG TABLET, 1/2 TAB ORAL AT BEDTIME) )
     Route: 048
  9. LYRICA [Suspect]
     Active Substance: PREGABALIN
     Indication: NEURALGIA
     Dosage: 150 MG, 3X/DAY
     Route: 048
     Dates: start: 2015
  10. LYRICA [Suspect]
     Active Substance: PREGABALIN
     Dosage: 150 MG, 3X/DAY (TAKE 1 CAPSULE (150 MG TOTAL) BY MOUTH 3 (THREE) TIMES DAILY)
     Route: 048
     Dates: start: 20200506
  11. NORVASC [Concomitant]
     Active Substance: AMLODIPINE BESYLATE
     Indication: HYPERTENSION
     Dosage: 5 MG, DAILY
     Dates: start: 20170515

REACTIONS (3)
  - Insomnia [Not Recovered/Not Resolved]
  - Withdrawal syndrome [Unknown]
  - Incoherent [Unknown]

NARRATIVE: CASE EVENT DATE: 202005
